FAERS Safety Report 9128590 (Version 2)
Quarter: 2013Q2

REPORT INFORMATION
  Report Type: Spontaneous
  Country: JP (occurrence: JP)
  Receive Date: 20130228
  Receipt Date: 20130402
  Transmission Date: 20140414
  Serious: Yes (Other)
  Sender: FDA-Public Use
  Company Number: JP-009507513-1302JPN012122

PATIENT
  Age: 55 Year
  Sex: Male

DRUGS (2)
  1. NU-LOTAN TABLET 50 [Suspect]
     Dosage: 50 MG, DIVIDED DOSE FREQUENCY UNKNOWN
     Route: 048
  2. NU-LOTAN TABLET 50 [Suspect]
     Dosage: 25 MG, A DAY
     Route: 048

REACTIONS (2)
  - Rhabdomyolysis [Unknown]
  - Blood creatine phosphokinase increased [Unknown]
